FAERS Safety Report 7689361-8 (Version None)
Quarter: 2011Q3

REPORT INFORMATION
  Report Type: 
  Country: None (occurrence: None)
  Receive Date: 20110817
  Receipt Date: 20110811
  Transmission Date: 20111222
  Serious: Yes (Death, Hospitalization, Other)
  Sender: FDA-Public Use
  Company Number: US-PFIZER INC-2011013175

PATIENT
  Sex: Male

DRUGS (2)
  1. DILANTIN-125 [Suspect]
     Indication: CONVULSION
     Dosage: UNK
     Route: 048
  2. PHENYTOIN [Suspect]
     Indication: CONVULSION
     Route: 048

REACTIONS (2)
  - TOXIC EPIDERMAL NECROLYSIS [None]
  - RENAL FAILURE [None]
